FAERS Safety Report 20736119 (Version 2)
Quarter: 2022Q2

REPORT INFORMATION
  Report Type: Report from Study
  Country: US (occurrence: US)
  Receive Date: 20220421
  Receipt Date: 20220520
  Transmission Date: 20220721
  Serious: Yes (Other)
  Sender: FDA-Public Use
  Company Number: US-BAYER-2022A057922

PATIENT
  Age: 42 Year
  Sex: Female

DRUGS (2)
  1. NEXAVAR [Suspect]
     Active Substance: SORAFENIB
     Indication: Desmoid tumour
     Dosage: UNK
     Dates: start: 20220203
  2. NEXAVAR [Suspect]
     Active Substance: SORAFENIB
     Indication: Desmoid tumour
     Dosage: 400 MG, QD
     Route: 048

REACTIONS (9)
  - Mass [Unknown]
  - Fall [Unknown]
  - Hallucination, auditory [Unknown]
  - Muscle spasms [Unknown]
  - Hyperexplexia [Unknown]
  - Dizziness [Unknown]
  - Mouth ulceration [Recovered/Resolved]
  - Fatigue [None]
  - Alopecia [None]
